FAERS Safety Report 15744332 (Version 1)
Quarter: 2018Q4

REPORT INFORMATION
  Report Type: Spontaneous
  Country: US (occurrence: US)
  Receive Date: 20181205
  Receipt Date: 20181205
  Transmission Date: 20190205
  Serious: No
  Sender: FDA-Public Use
  Company Number: None

PATIENT
  Sex: Female
  Weight: 129.73 kg

DRUGS (2)
  1. OMPERAZOLE [Suspect]
     Active Substance: OMEPRAZOLE
     Indication: SUBACUTE CUTANEOUS LUPUS ERYTHEMATOSUS
  2. RASUVO [Suspect]
     Active Substance: METHOTREXATE SODIUM
     Indication: SUBACUTE CUTANEOUS LUPUS ERYTHEMATOSUS
     Route: 058
     Dates: start: 201811

REACTIONS (2)
  - Dizziness [None]
  - Fatigue [None]
